FAERS Safety Report 17454572 (Version 1)
Quarter: 2020Q1

REPORT INFORMATION
  Report Type: Spontaneous
  Country: US (occurrence: US)
  Receive Date: 20200224
  Receipt Date: 20200224
  Transmission Date: 20200409
  Serious: No
  Sender: FDA-Public Use
  Company Number: None

PATIENT
  Age: 44 Year
  Sex: Female
  Weight: 66.15 kg

DRUGS (12)
  1. TURMERIC [Concomitant]
     Active Substance: HERBALS\TURMERIC
  2. POTASSIUM [Concomitant]
     Active Substance: POTASSIUM
  3. VITAMIN C WITH ROSE HIPS [Concomitant]
  4. CRANBERRY. [Concomitant]
     Active Substance: CRANBERRY
  5. ZYRTEC [Concomitant]
     Active Substance: CETIRIZINE HYDROCHLORIDE
  6. WOMEN^S ONE A DAY [Concomitant]
     Active Substance: VITAMINS
  7. ESSENTIAL OIL PROTECTIVE BLEND [Concomitant]
  8. VYLEESI [Suspect]
     Active Substance: BREMELANOTIDE ACETATE
     Indication: LIBIDO DECREASED
     Dosage: ?          QUANTITY:1 INJECTION(S);?
     Route: 058
     Dates: start: 20200221, end: 20200221
  9. ACIDOPHILUS [Concomitant]
     Active Substance: LACTOBACILLUS ACIDOPHILUS
  10. VITAMIN B12 [Concomitant]
     Active Substance: CYANOCOBALAMIN
  11. ESSENTIAL OIL CELLULAR COMPLEX [Concomitant]
  12. BLACK SEED OIL [Concomitant]

REACTIONS (1)
  - Menorrhagia [None]

NARRATIVE: CASE EVENT DATE: 20200222
